FAERS Safety Report 9329807 (Version 1)
Quarter: 2013Q2

REPORT INFORMATION
  Report Type: Spontaneous
  Country: US (occurrence: US)
  Receive Date: 20130604
  Receipt Date: 20130604
  Transmission Date: 20140414
  Serious: No
  Sender: FDA-Public Use
  Company Number: US-SANOFI-AVENTIS-2013SA037871

PATIENT
  Age: 72 Year
  Sex: Male

DRUGS (2)
  1. SOLOSTAR [Suspect]
     Dates: start: 2010
  2. LANTUS SOLOSTAR [Suspect]
     Dosage: DOSE:UP TO 20 UNITS
     Route: 065
     Dates: start: 2010

REACTIONS (2)
  - Feeling abnormal [Unknown]
  - Blood glucose increased [Unknown]
